FAERS Safety Report 15802238 (Version 1)
Quarter: 2019Q1

REPORT INFORMATION
  Report Type: Spontaneous
  Country: US (occurrence: US)
  Receive Date: 20190109
  Receipt Date: 20190109
  Transmission Date: 20190417
  Serious: Yes (Other)
  Sender: FDA-Public Use
  Company Number: US-RECKITT BENCKISER HEALTHCARE INT LIMITED-RB-80291-2019

PATIENT
  Age: 61 Year
  Sex: Male

DRUGS (3)
  1. MUCINEX DM [Suspect]
     Active Substance: DEXTROMETHORPHAN HYDROBROMIDE\GUAIFENESIN
     Indication: INFLUENZA
     Dosage: UNK (HAD BEEN TAKING IT FOR A COUPLE OF DAYS)
     Route: 065
     Dates: start: 20190101
  2. ALKA SELTZER PLUS                  /00002701/ [Suspect]
     Active Substance: ASPIRIN
     Indication: INFLUENZA
     Dosage: UNK (BEFORE BED THE PREVIOUS NIGHT)
     Route: 065
     Dates: start: 201901
  3. INSULIN [Concomitant]
     Active Substance: INSULIN NOS
     Indication: DIABETES MELLITUS
     Dosage: 11 UNITS, UNKNOWN
     Route: 065

REACTIONS (1)
  - Hyperglycaemia [Unknown]
